FAERS Safety Report 16663800 (Version 1)
Quarter: 2019Q3

REPORT INFORMATION
  Report Type: Spontaneous
  Country: US (occurrence: US)
  Receive Date: 20190802
  Receipt Date: 20190802
  Transmission Date: 20191004
  Serious: No
  Sender: FDA-Public Use
  Company Number: US-BAUSCH-BL-2019-020436

PATIENT
  Age: 48 Year
  Sex: Female
  Weight: 80.36 kg

DRUGS (4)
  1. BUPROPION HYDROCHLORIDE. [Suspect]
     Active Substance: BUPROPION HYDROCHLORIDE
     Indication: PANIC ATTACK
  2. CYMBALTA [Concomitant]
     Active Substance: DULOXETINE HYDROCHLORIDE
     Indication: PRODUCT USED FOR UNKNOWN INDICATION
     Route: 048
  3. BUPROPION HYDROCHLORIDE. [Suspect]
     Active Substance: BUPROPION HYDROCHLORIDE
     Indication: DEPRESSION
     Dosage: 3 TABLETS ONCE A DAY
     Route: 048
     Dates: start: 2015
  4. LATUDA [Concomitant]
     Active Substance: LURASIDONE HYDROCHLORIDE
     Indication: PRODUCT USED FOR UNKNOWN INDICATION
     Route: 048

REACTIONS (5)
  - Depression [Not Recovered/Not Resolved]
  - Extra dose administered [Unknown]
  - Malaise [Not Recovered/Not Resolved]
  - Product residue present [Not Recovered/Not Resolved]
  - Somnolence [Not Recovered/Not Resolved]

NARRATIVE: CASE EVENT DATE: 2015
